FAERS Safety Report 9325107 (Version 1)
Quarter: 2013Q2

REPORT INFORMATION
  Report Type: Spontaneous
  Country: FR (occurrence: FR)
  Receive Date: 20130603
  Receipt Date: 20130603
  Transmission Date: 20140414
  Serious: Yes (Hospitalization)
  Sender: FDA-Public Use
  Company Number: FR-B.I. PHARMACEUTICALS,INC./RIDGEFIELD-2013-FF-01502FF

PATIENT
  Age: 66 Year
  Sex: Male

DRUGS (2)
  1. ATROVENT [Suspect]
     Dates: start: 20130222
  2. ACTIFED [Suspect]
     Dates: start: 20130222

REACTIONS (2)
  - Rash maculo-papular [Recovered/Resolved]
  - Pyrexia [Recovered/Resolved]
